FAERS Safety Report 7733497-X (Version None)
Quarter: 2011Q3

REPORT INFORMATION
  Report Type: 
  Country: None (occurrence: None)
  Receive Date: 20110907
  Receipt Date: 20110907
  Transmission Date: 20111222
  Serious: Yes (Other)
  Sender: FDA-Public Use
  Company Number: None

PATIENT
  Age: 78 Year
  Sex: Male
  Weight: 95.254 kg

DRUGS (1)
  1. ADVAIR DISKUS 100/50 [Suspect]
     Dosage: 1
     Route: 048

REACTIONS (3)
  - DYSGEUSIA [None]
  - INCREASED UPPER AIRWAY SECRETION [None]
  - SPUTUM DISCOLOURED [None]
